FAERS Safety Report 19777409 (Version 1)
Quarter: 2021Q3

REPORT INFORMATION
  Report Type: Report from Study
  Country: BR (occurrence: BR)
  Receive Date: 20210902
  Receipt Date: 20210902
  Transmission Date: 20211014
  Serious: Yes (Other)
  Sender: FDA-Public Use
  Company Number: NVSC2021BR193302

PATIENT
  Sex: Female

DRUGS (2)
  1. TRAVATAN [Suspect]
     Active Substance: TRAVOPROST
     Indication: PRODUCT USED FOR UNKNOWN INDICATION
     Dosage: UNK (5 ML AS REPORTED)
     Route: 065
  2. TRAVATAN [Suspect]
     Active Substance: TRAVOPROST
     Dosage: UNK (2 AND HALF ML)
     Route: 065
     Dates: start: 2012

REACTIONS (3)
  - Excessive eye blinking [Unknown]
  - Visual impairment [Unknown]
  - Eye disorder [Unknown]

NARRATIVE: CASE EVENT DATE: 2012
